FAERS Safety Report 10033632 (Version 1)
Quarter: 2014Q1

REPORT INFORMATION
  Report Type: Spontaneous
  Country: US (occurrence: US)
  Receive Date: 20140325
  Receipt Date: 20140325
  Transmission Date: 20141002
  Serious: No
  Sender: FDA-Public Use
  Company Number: US-BIOGENIDEC-2014BI023483

PATIENT
  Age: 62 Year
  Sex: Male

DRUGS (7)
  1. TECFIDERA [Suspect]
     Indication: MULTIPLE SCLEROSIS
     Route: 048
  2. AMPYRA [Concomitant]
  3. CALCIUM MAGNESIUM 750 [Concomitant]
  4. DOXAZOSIN MESYLATE [Concomitant]
  5. VITAMIN B COMPLEX [Concomitant]
  6. VITAMIN B-12 ER [Concomitant]
  7. VITAMIN D [Concomitant]

REACTIONS (3)
  - Asthenia [Not Recovered/Not Resolved]
  - Balance disorder [Not Recovered/Not Resolved]
  - Fatigue [Not Recovered/Not Resolved]
